FAERS Safety Report 7030820 (Version 2)
Quarter: 2012Q4

REPORT INFORMATION
  Report Type: 
  Country: US (occurrence: US)
  Receive Date: 20090623
  Receipt Date: 20121017
  Transmission Date: 20130627
  Serious: No
  Sender: FDA-Public Use
  Company Number: US-ASTRAZENECA-2009UW04669

PATIENT
  Age: 75 Year
  Sex: Female

DRUGS (2)
  1. PULMICORT [Suspect]
     Dosage: UNKNOWN
     Route: 055
  2. NEXIUM [Suspect]
     Route: 048

REACTIONS (4)
  - Tremor [Unknown]
  - Muscle spasms [Unknown]
  - Dysphagia [Unknown]
  - Cough [Unknown]
